FAERS Safety Report 15736874 (Version 9)
Quarter: 2019Q2

REPORT INFORMATION
  Report Type: Spontaneous
  Country: US (occurrence: US)
  Receive Date: 20181218
  Receipt Date: 20190621
  Transmission Date: 20190711
  Serious: Yes (Hospitalization, Other)
  Sender: FDA-Public Use
  Company Number: US-ELI_LILLY_AND_COMPANY-US201812006103

PATIENT
  Age: 76 Year
  Sex: Female

DRUGS (7)
  1. AMBRISENTAN [Suspect]
     Active Substance: AMBRISENTAN
     Indication: PULMONARY ARTERIAL HYPERTENSION
     Dosage: 5 MG, DAILY
     Route: 065
     Dates: start: 20171215
  2. ADCIRCA [Suspect]
     Active Substance: TADALAFIL
     Indication: PULMONARY ARTERIAL HYPERTENSION
     Dosage: UNK, UNKNOWN
     Route: 065
  3. ORENITRAM [Suspect]
     Active Substance: TREPROSTINIL
     Indication: PULMONARY ARTERIAL HYPERTENSION
     Dosage: 6.25 MG, TID
     Route: 048
     Dates: start: 20181206
  4. ORENITRAM [Suspect]
     Active Substance: TREPROSTINIL
     Dosage: 6.25 MG, TID
     Route: 048
     Dates: start: 20181206
  5. ORENITRAM [Suspect]
     Active Substance: TREPROSTINIL
     Dosage: 6.25 MG, TID
     Route: 048
     Dates: start: 20181206
  6. REMODULIN [Suspect]
     Active Substance: TREPROSTINIL
     Indication: PRODUCT USED FOR UNKNOWN INDICATION
     Dosage: UNK, UNKNOWN
     Route: 065
     Dates: end: 20181207
  7. TORSEMIDE. [Concomitant]
     Active Substance: TORSEMIDE
     Indication: PRODUCT USED FOR UNKNOWN INDICATION

REACTIONS (28)
  - Injection site papule [Not Recovered/Not Resolved]
  - Productive cough [Not Recovered/Not Resolved]
  - Dizziness [Not Recovered/Not Resolved]
  - Scleroderma [Not Recovered/Not Resolved]
  - Pleural effusion [Unknown]
  - Skin discolouration [Not Recovered/Not Resolved]
  - Dry skin [Not Recovered/Not Resolved]
  - Pruritus [Unknown]
  - Headache [Recovered/Resolved]
  - Vomiting [Recovered/Resolved]
  - Diarrhoea [Recovered/Resolved]
  - Diarrhoea [Not Recovered/Not Resolved]
  - Hypersomnia [Not Recovered/Not Resolved]
  - Vomiting [Recovered/Resolved]
  - Anaemia [Unknown]
  - Injection site pain [Unknown]
  - Frequent bowel movements [Not Recovered/Not Resolved]
  - Blood potassium decreased [Not Recovered/Not Resolved]
  - Cough [Unknown]
  - Injection site pruritus [Not Recovered/Not Resolved]
  - Fall [Unknown]
  - Hair growth abnormal [Not Recovered/Not Resolved]
  - Weight decreased [Unknown]
  - Diarrhoea [Recovered/Resolved]
  - Diarrhoea [Unknown]
  - Vomiting [Unknown]
  - Vomiting [Unknown]
  - Vomiting [Not Recovered/Not Resolved]

NARRATIVE: CASE EVENT DATE: 20181209
